FAERS Safety Report 19468644 (Version 1)
Quarter: 2021Q2

REPORT INFORMATION
  Report Type: Other
  Country: CA (occurrence: CA)
  Receive Date: 20210628
  Receipt Date: 20210628
  Transmission Date: 20210717
  Serious: Yes (Death, Other)
  Sender: FDA-Public Use
  Company Number: CA-CELLTRION INC.-2021CA008554

PATIENT

DRUGS (3)
  1. RITUXIMAB (UNKNOWN) [Suspect]
     Active Substance: RITUXIMAB
     Indication: TRANSPLANT REJECTION
     Dosage: UNK
     Route: 065
  2. IMMUNOGLOBULIN HUMAN [Suspect]
     Active Substance: HUMAN IMMUNOGLOBULIN G
     Indication: TRANSPLANT REJECTION
     Dosage: UNK
     Route: 042
  3. METHYLPREDNISOLONE. [Suspect]
     Active Substance: METHYLPREDNISOLONE
     Indication: TRANSPLANT REJECTION
     Route: 065

REACTIONS (7)
  - Cardiac cirrhosis [Fatal]
  - Off label use [Unknown]
  - Cardiac arrest [Fatal]
  - Ventricular tachycardia [Fatal]
  - Intentional product use issue [Fatal]
  - Coronary artery disease [Fatal]
  - Drug ineffective [Fatal]
